FAERS Safety Report 12577547 (Version 1)
Quarter: 2016Q3

REPORT INFORMATION
  Report Type: Report from Study
  Country: CA (occurrence: CA)
  Receive Date: 20160720
  Receipt Date: 20160720
  Transmission Date: 20161109
  Serious: Yes (Hospitalization)
  Sender: FDA-Public Use
  Company Number: CA-EXELIXIS-XL18416006683

PATIENT
  Age: 58 Year
  Sex: Female

DRUGS (1)
  1. XL184 [Suspect]
     Active Substance: CABOZANTINIB
     Indication: ENDOMETRIAL STROMAL SARCOMA
     Dosage: 60 MG, QD
     Route: 048
     Dates: start: 20151013

REACTIONS (4)
  - Nausea [Unknown]
  - Vomiting [Unknown]
  - Non-cardiac chest pain [Unknown]
  - Cholecystitis [Unknown]

NARRATIVE: CASE EVENT DATE: 20160401
